FAERS Safety Report 8133746-2 (Version None)
Quarter: 2012Q1

REPORT INFORMATION
  Report Type: 
  Country: None (occurrence: None)
  Receive Date: 20120213
  Receipt Date: 20120213
  Transmission Date: 20120608
  Serious: Yes (Other)
  Sender: FDA-Public Use
  Company Number: None

PATIENT
  Age: 48 Year
  Sex: Female
  Weight: 64.41 kg

DRUGS (2)
  1. PRILOSEC [Suspect]
     Indication: GASTROOESOPHAGEAL REFLUX DISEASE
     Route: 048
     Dates: start: 20090201, end: 20090301
  2. OMEPRAZOLE [Concomitant]
     Indication: COUGH
     Dates: start: 20100420, end: 20100430

REACTIONS (2)
  - GASTRIC DILATATION [None]
  - DIARRHOEA [None]
